FAERS Safety Report 17515210 (Version 4)
Quarter: 2020Q2

REPORT INFORMATION
  Report Type: Spontaneous
  Country: US (occurrence: US)
  Receive Date: 20200309
  Receipt Date: 20200428
  Transmission Date: 20200713
  Serious: Yes (Death, Hospitalization)
  Sender: FDA-Public Use
  Company Number: US-ULTRAGENYX PHARMACEUTICAL INC.-US-UGNX-20-00037

PATIENT
  Age: 3 Month
  Sex: Male

DRUGS (4)
  1. MEPSEVII [Suspect]
     Active Substance: VESTRONIDASE ALFA-VJBK
     Dates: start: 20191227, end: 20200220
  2. ALDACTONE [Concomitant]
     Active Substance: SPIRONOLACTONE
     Indication: PRODUCT USED FOR UNKNOWN INDICATION
     Dates: start: 20191010
  3. MEPSEVII [Suspect]
     Active Substance: VESTRONIDASE ALFA-VJBK
     Indication: PRODUCT USED FOR UNKNOWN INDICATION
     Dates: start: 20191213
  4. DIURIL [Concomitant]
     Active Substance: CHLOROTHIAZIDE
     Indication: PRODUCT USED FOR UNKNOWN INDICATION
     Dates: start: 20191107

REACTIONS (3)
  - Hypercapnia [Fatal]
  - Respiratory failure [Fatal]
  - Bradycardia [Fatal]

NARRATIVE: CASE EVENT DATE: 202001
